FAERS Safety Report 19175747 (Version 2)
Quarter: 2021Q2

REPORT INFORMATION
  Report Type: Spontaneous
  Country: PL (occurrence: PL)
  Receive Date: 20210423
  Receipt Date: 20210607
  Transmission Date: 20210717
  Serious: Yes (Hospitalization, Other)
  Sender: FDA-Public Use
  Company Number: PL-JNJFOC-20210428741

PATIENT
  Age: 30 Year
  Sex: Female

DRUGS (1)
  1. VELETRI [Suspect]
     Active Substance: EPOPROSTENOL
     Indication: PULMONARY ARTERIAL HYPERTENSION
     Route: 042

REACTIONS (15)
  - Septic shock [Unknown]
  - Thrombocytopenia [Unknown]
  - Acidosis [Unknown]
  - General physical health deterioration [Unknown]
  - Premature separation of placenta [Unknown]
  - Premature labour [Recovered/Resolved]
  - Haemorrhage [Unknown]
  - Cardiogenic shock [Unknown]
  - Respiratory tract haemorrhage [Unknown]
  - Tachycardia [Unknown]
  - Genital haemorrhage [Unknown]
  - Haemoperitoneum [Unknown]
  - Respiratory failure [Unknown]
  - Haemodynamic instability [Unknown]
  - Exposure during pregnancy [Recovered/Resolved]
